FAERS Safety Report 9868201 (Version 1)
Quarter: 2014Q1

REPORT INFORMATION
  Report Type: Spontaneous
  Country: GB (occurrence: GB)
  Receive Date: 20140204
  Receipt Date: 20140204
  Transmission Date: 20141002
  Serious: Yes (Other)
  Sender: FDA-Public Use
  Company Number: PHHY2014GB011593

PATIENT
  Sex: Female
  Weight: 2.41 kg

DRUGS (2)
  1. CICLOSPORIN [Suspect]
     Dosage: MATERNAL DOSE: 6 MG/KG/DAY
     Route: 064
  2. AZATHIOPRINE [Suspect]
     Dosage: MATERNAL DOSE:75 MG/DAY
     Route: 064

REACTIONS (5)
  - T-lymphocyte count decreased [Unknown]
  - CD4 lymphocytes increased [Unknown]
  - Low birth weight baby [Unknown]
  - Premature baby [Unknown]
  - Foetal exposure during delivery [Unknown]
